FAERS Safety Report 5989320-7 (Version None)
Quarter: 2008Q4

REPORT INFORMATION
  Report Type: 
  Country: None (occurrence: None)
  Receive Date: 20081210
  Receipt Date: 20081201
  Transmission Date: 20090506
  Serious: Yes (Death, Hospitalization)
  Sender: FDA-Public Use
  Company Number: FR-BAXTER-2008BH011591

PATIENT
  Age: 73 Year
  Sex: Male
  Weight: 98 kg

DRUGS (10)
  1. ENDOXAN BAXTER [Suspect]
     Indication: B-CELL LYMPHOMA
     Route: 042
     Dates: start: 20080626, end: 20080922
  2. MABTHERA [Suspect]
     Indication: B-CELL LYMPHOMA
     Route: 042
     Dates: start: 20080626, end: 20080922
  3. DOXORUBICIN HCL [Suspect]
     Indication: B-CELL LYMPHOMA
     Route: 042
     Dates: start: 20080626, end: 20080922
  4. ONCOVIN [Suspect]
     Indication: B-CELL LYMPHOMA
     Route: 042
     Dates: start: 20080626, end: 20080922
  5. PREDNISONE TAB [Suspect]
     Indication: B-CELL LYMPHOMA
     Route: 042
     Dates: start: 20080626, end: 20080922
  6. AMARYL [Concomitant]
     Indication: TYPE 2 DIABETES MELLITUS
  7. PLAVIX [Concomitant]
     Indication: ARTERIAL DISORDER
  8. CARDIOXANE [Concomitant]
     Indication: CARDIAC FAILURE
     Dates: start: 20080101
  9. NEULASTA [Concomitant]
     Dates: start: 20080101
  10. EPREX /UNK/ [Concomitant]
     Dates: start: 20080101

REACTIONS (2)
  - CARDIAC FAILURE [None]
  - PROGRESSIVE MULTIFOCAL LEUKOENCEPHALOPATHY [None]
